FAERS Safety Report 11375526 (Version 1)
Quarter: 2015Q3

REPORT INFORMATION
  Report Type: Spontaneous
  Country: US (occurrence: US)
  Receive Date: 20150813
  Receipt Date: 20150813
  Transmission Date: 20151125
  Serious: Yes (Other)
  Sender: FDA-Public Use
  Company Number: US-ASTRAZENECA-2015SE77826

PATIENT

DRUGS (1)
  1. FULVESTRANT [Suspect]
     Active Substance: FULVESTRANT
     Route: 030

REACTIONS (6)
  - Anaemia [Unknown]
  - Dyspnoea [Unknown]
  - Reaction to drug excipients [Unknown]
  - Neutropenia [Unknown]
  - Metastases to bone marrow [Unknown]
  - Alopecia [Unknown]
